FAERS Safety Report 6941429-7 (Version None)
Quarter: 2010Q3

REPORT INFORMATION
  Report Type: 
  Country: None (occurrence: None)
  Receive Date: 20100825
  Receipt Date: 20100811
  Transmission Date: 20110219
  Serious: Yes (Hospitalization)
  Sender: FDA-Public Use
  Company Number: GB-MYLANLABS-2010S1013304

PATIENT
  Age: 79 Year
  Sex: Male

DRUGS (12)
  1. FUROSEMIDE [Suspect]
     Indication: FLUID OVERLOAD
     Route: 048
  2. METFORMIN HCL [Suspect]
     Indication: DIABETES MELLITUS
     Route: 048
  3. RAMIPRIL [Suspect]
     Indication: HYPERTENSION
     Route: 048
  4. RAMIPRIL [Suspect]
     Indication: LEFT VENTRICULAR FAILURE
     Route: 048
  5. ATORVASTATIN [Suspect]
     Indication: HYPERCHOLESTEROLAEMIA
     Route: 048
     Dates: end: 20100712
  6. BENDROFLUMETHAZIDE [Suspect]
     Indication: POLYURIA
     Route: 048
  7. OXYCONTIN [Suspect]
     Indication: PHANTOM PAIN
     Route: 048
  8. OXYCODONE HCL [Suspect]
     Indication: BREAKTHROUGH PAIN
     Route: 048
     Dates: end: 20100712
  9. ASPIRIN [Concomitant]
     Indication: PRODUCT USED FOR UNKNOWN INDICATION
  10. DOXYCYCLINE [Concomitant]
     Indication: PRODUCT USED FOR UNKNOWN INDICATION
  11. PARACETAMOL [Concomitant]
     Indication: PRODUCT USED FOR UNKNOWN INDICATION
  12. PREGABALIN [Concomitant]
     Indication: PRODUCT USED FOR UNKNOWN INDICATION

REACTIONS (3)
  - BLOOD CREATINE PHOSPHOKINASE INCREASED [None]
  - NARCOTIC INTOXICATION [None]
  - RENAL FAILURE ACUTE [None]
